FAERS Safety Report 10148998 (Version 1)
Quarter: 2014Q2

REPORT INFORMATION
  Report Type: Spontaneous
  Country: US (occurrence: US)
  Receive Date: 20140502
  Receipt Date: 20140502
  Transmission Date: 20141212
  Serious: Yes (Other)
  Sender: FDA-Public Use
  Company Number: US-BRISTOL-MYERS SQUIBB COMPANY-20673109

PATIENT
  Sex: Female

DRUGS (5)
  1. ABILIFY [Suspect]
  2. ZYPREXA [Suspect]
  3. REMERON [Suspect]
  4. LUNESTA [Suspect]
  5. CLOZARIL [Suspect]

REACTIONS (11)
  - Cough [Unknown]
  - Pneumothorax traumatic [Unknown]
  - Abdominal pain upper [Unknown]
  - Gastrointestinal pain [Unknown]
  - Bedridden [Unknown]
  - Injury [Unknown]
  - Emotional distress [Unknown]
  - Pain [Unknown]
  - Chapped lips [Unknown]
  - Urinary tract infection [Unknown]
  - Toothache [Unknown]
